FAERS Safety Report 8207081-8 (Version None)
Quarter: 2012Q1

REPORT INFORMATION
  Report Type: 
  Country: None (occurrence: None)
  Receive Date: 20120312
  Receipt Date: 20120306
  Transmission Date: 20120608
  Serious: Yes (Other)
  Sender: FDA-Public Use
  Company Number: CIP-2012-00085

PATIENT
  Age: 62 Year
  Sex: Male

DRUGS (11)
  1. RISPERIDONE [Suspect]
     Indication: INSOMNIA
     Dosage: SEE IMAGE
     Dates: start: 20080101
  2. RISPERIDONE [Suspect]
     Indication: RESPIRATORY DYSKINESIA
     Dosage: SEE IMAGE
     Dates: start: 20080101
  3. RISPERIDONE [Suspect]
     Indication: HYPOMANIA
     Dosage: SEE IMAGE
     Dates: start: 20080101
  4. RISPERIDONE [Suspect]
     Indication: INSOMNIA
     Dosage: SEE IMAGE
     Dates: start: 20080601
  5. RISPERIDONE [Suspect]
     Indication: RESPIRATORY DYSKINESIA
     Dosage: SEE IMAGE
     Dates: start: 20080601
  6. RISPERIDONE [Suspect]
     Indication: HYPOMANIA
     Dosage: SEE IMAGE
     Dates: start: 20080601
  7. PROPRANOLOL [Concomitant]
  8. QUETIAPINE FUMARATE [Concomitant]
  9. SERTRALINE HYDROCHLORIDE [Concomitant]
  10. MIANSERIN (MIANSERIN) [Concomitant]
  11. CLONAZEPAM [Concomitant]

REACTIONS (7)
  - DYSPNOEA [None]
  - BRONCHIAL HYPERREACTIVITY [None]
  - ANXIETY [None]
  - DYSKINESIA [None]
  - TREMOR [None]
  - STEREOTYPY [None]
  - RESPIRATORY DYSKINESIA [None]
